FAERS Safety Report 7771119-2 (Version None)
Quarter: 2011Q3

REPORT INFORMATION
  Report Type: 
  Country: None (occurrence: None)
  Receive Date: 20110922
  Receipt Date: 20110919
  Transmission Date: 20111222
  Serious: Yes (Hospitalization)
  Sender: FDA-Public Use
  Company Number: SK-PFIZER INC-2011222374

PATIENT
  Age: 38 Year
  Sex: Male
  Weight: 111 kg

DRUGS (2)
  1. SOMATROPIN [Suspect]
     Indication: HYPOPITUITARISM
     Dosage: 0.2 MG, 1X/DAY
     Dates: start: 20050922, end: 20110811
  2. UNDESTOR [Concomitant]
     Indication: HYPOGONADISM
     Dosage: 40 MG, 2X/DAY
     Route: 048
     Dates: start: 20040616

REACTIONS (1)
  - PITUITARY TUMOUR BENIGN [None]
